FAERS Safety Report 11891093 (Version 4)
Quarter: 2018Q1

REPORT INFORMATION
  Report Type: Spontaneous
  Country: FR (occurrence: FR)
  Receive Date: 20160106
  Receipt Date: 20180226
  Transmission Date: 20180508
  Serious: Yes (Life-Threatening, Hospitalization)
  Sender: FDA-Public Use
  Company Number: FR-ROCHE-1675349

PATIENT
  Age: 68 Year
  Sex: Female

DRUGS (15)
  1. INEXIUM [Concomitant]
     Active Substance: ESOMEPRAZOLE
  2. LEVOTHYROX [Concomitant]
     Active Substance: LEVOTHYROXINE
  3. BECILAN [Concomitant]
     Active Substance: PYRIDOXINE
  4. LEVOTHYROXINE. [Concomitant]
     Active Substance: LEVOTHYROXINE
  5. ROACTEMRA [Suspect]
     Active Substance: TOCILIZUMAB
     Indication: RHEUMATOID ARTHRITIS
     Route: 042
     Dates: start: 20151126, end: 20151126
  6. METHOTREXATE. [Concomitant]
     Active Substance: METHOTREXATE
     Route: 065
  7. CORTANCYL [Concomitant]
     Active Substance: PREDNISONE
  8. LYRICA [Concomitant]
     Active Substance: PREGABALIN
  9. FLECTOR [Concomitant]
     Active Substance: DICLOFENAC EPOLAMINE
  10. PARACETAMOL [Concomitant]
     Active Substance: ACETAMINOPHEN
  11. PLAQUENIL [Concomitant]
     Active Substance: HYDROXYCHLOROQUINE SULFATE
  12. KLIPAL [Concomitant]
     Active Substance: ACETAMINOPHEN\CODEINE PHOSPHATE
  13. UVEDOSE [Concomitant]
     Active Substance: CHOLECALCIFEROL
  14. SALAZOPYRINE [Concomitant]
     Active Substance: SULFASALAZINE
  15. SPECIAFOLDINE [Concomitant]
     Active Substance: FOLIC ACID

REACTIONS (3)
  - Disturbance in attention [Recovering/Resolving]
  - Encephalitis [Recovering/Resolving]
  - Cognitive disorder [Recovering/Resolving]

NARRATIVE: CASE EVENT DATE: 20151128
